FAERS Safety Report 19918577 (Version 1)
Quarter: 2021Q4

REPORT INFORMATION
  Report Type: Spontaneous
  Country: SK (occurrence: SK)
  Receive Date: 20211005
  Receipt Date: 20211005
  Transmission Date: 20220303
  Serious: Yes (Death)
  Sender: FDA-Public Use
  Company Number: SK-NOVARTISPH-NVSC2021SK222868

PATIENT
  Sex: Female

DRUGS (1)
  1. KISQALI [Suspect]
     Active Substance: RIBOCICLIB
     Indication: Breast cancer
     Dosage: 600 MG
     Route: 065
     Dates: start: 202104, end: 202108

REACTIONS (1)
  - Death [Fatal]

NARRATIVE: CASE EVENT DATE: 20210101
